FAERS Safety Report 4329282-1 (Version None)
Quarter: 2004Q1

REPORT INFORMATION
  Report Type: 
  Country: None (occurrence: None)
  Receive Date: 20040319
  Receipt Date: 20040113
  Transmission Date: 20041129
  Serious: Yes (Other)
  Sender: FDA-Public Use
  Company Number: US-JNJFOC-20030803142

PATIENT
  Age: 47 Year
  Sex: Female
  Weight: 68.0396 kg

DRUGS (4)
  1. ORTHO EVRA [Suspect]
     Indication: CONTRACEPTION
     Dosage: 1 DOSE (S), 3 IN 4 WEEK, TRANSDERMAL
     Route: 062
  2. ALLEGRA [Concomitant]
  3. CIPROFLOXACIN [Concomitant]
  4. ENDOCET (OXYCOCET) [Concomitant]

REACTIONS (2)
  - GALLBLADDER DISORDER [None]
  - METRORRHAGIA [None]
